FAERS Safety Report 4361402-5 (Version None)
Quarter: 2004Q2

REPORT INFORMATION
  Report Type: 
  Country: None (occurrence: None)
  Receive Date: 20040517
  Receipt Date: 20040212
  Transmission Date: 20050107
  Serious: Yes (Other)
  Sender: FDA-Public Use
  Company Number: 2004004898

PATIENT
  Age: 16 Year
  Sex: Female

DRUGS (2)
  1. GEODON [Suspect]
     Indication: TOURETTE'S DISORDER
     Dosage: 80 MG (2 IN 1 D), ORAL
     Route: 048
     Dates: start: 20021202, end: 20021203
  2. FLUOXETINE HCL [Concomitant]
     Indication: ILL-DEFINED DISORDER
     Dosage: 10 MG (1 IN 1 D), ORAL
     Route: 048
     Dates: start: 20021203, end: 20021203

REACTIONS (3)
  - DYSPNOEA [None]
  - DYSTONIA [None]
  - MUSCLE CONTRACTIONS INVOLUNTARY [None]
